FAERS Safety Report 24026902 (Version 1)
Quarter: 2024Q2

REPORT INFORMATION
  Report Type: Spontaneous
  Country: CN (occurrence: CN)
  Receive Date: 20240628
  Receipt Date: 20240628
  Transmission Date: 20240716
  Serious: Yes (Hospitalization)
  Sender: FDA-Public Use
  Company Number: CN-BEIGENE-BGN-2024-009530

PATIENT

DRUGS (4)
  1. TISLELIZUMAB [Suspect]
     Active Substance: TISLELIZUMAB
     Indication: Small intestine carcinoma
     Dosage: 200 MILLIGRAM D1
     Route: 041
     Dates: start: 20240523
  2. TISLELIZUMAB [Suspect]
     Active Substance: TISLELIZUMAB
     Indication: Metastases to liver
  3. SURUFATINIB [Suspect]
     Active Substance: SURUFATINIB
     Indication: Small intestine carcinoma
     Dosage: 250 MILLIGRAM, QD D1-D14
     Route: 048
     Dates: start: 20240523
  4. SURUFATINIB [Suspect]
     Active Substance: SURUFATINIB
     Indication: Metastases to liver

REACTIONS (1)
  - Neutrophil count decreased [Recovering/Resolving]

NARRATIVE: CASE EVENT DATE: 20240615
